FAERS Safety Report 8183162-2 (Version None)
Quarter: 2012Q1

REPORT INFORMATION
  Report Type: 
  Country: None (occurrence: None)
  Receive Date: 20120305
  Receipt Date: 20120228
  Transmission Date: 20120608
  Serious: Yes (Hospitalization, Other)
  Sender: FDA-Public Use
  Company Number: ES-SHIRE-SPV1-2012-00215

PATIENT
  Age: 81 Year
  Sex: Female

DRUGS (1)
  1. FOSRENOL [Suspect]
     Indication: PRODUCT USED FOR UNKNOWN INDICATION
     Dosage: 3000 MG, 1X/DAY:QD
     Route: 048

REACTIONS (4)
  - MANIA [None]
  - MEGACOLON [None]
  - AGITATION [None]
  - CONFUSIONAL STATE [None]
